FAERS Safety Report 4966499-7 (Version None)
Quarter: 2006Q2

REPORT INFORMATION
  Report Type: 
  Country: None (occurrence: None)
  Receive Date: 20060407
  Receipt Date: 20001109
  Transmission Date: 20061013
  Serious: Yes (Hospitalization)
  Sender: FDA-Public Use
  Company Number: FR-SANOFI-SYNTHELABO-S/FRZOL00131

PATIENT
  Age: 67 Year
  Sex: Female

DRUGS (6)
  1. STILNOX [Suspect]
     Dosage: UNK
     Route: 048
  2. DEPAKENE [Concomitant]
     Dosage: UNK
     Route: 048
  3. PAROXETINE HYDROCHLORIDE [Concomitant]
     Dosage: UNK
     Route: 048
  4. ALDACTONE [Concomitant]
     Dosage: UNK
     Route: 065
  5. TRANXENE [Concomitant]
     Dosage: UNK
     Route: 065
  6. TRIHEXYLPHENIDYL [Concomitant]
     Dosage: UNK
     Route: 065

REACTIONS (3)
  - DEMENTIA [None]
  - PARKINSONISM [None]
  - TREMOR [None]
